FAERS Safety Report 9123192 (Version 1)
Quarter: 2013Q1

REPORT INFORMATION
  Report Type: Spontaneous
  Country: US (occurrence: None)
  Receive Date: 20130225
  Receipt Date: 20130225
  Transmission Date: 20140127
  Serious: No
  Sender: FDA-Public Use
  Company Number: None

PATIENT
  Sex: Male
  Weight: 68.04 kg

DRUGS (1)
  1. KEPPRA-GENERIC 1000MG UNKNOWN [Suspect]
     Indication: CONVULSION
     Dosage: 1000MG TWICE A DAY PO
     Route: 048
     Dates: start: 20120820, end: 20120920

REACTIONS (2)
  - Convulsion [None]
  - Product substitution issue [None]
